FAERS Safety Report 6233776-1 (Version None)
Quarter: 2009Q2

REPORT INFORMATION
  Report Type: 
  Country: None (occurrence: None)
  Receive Date: 20090615
  Receipt Date: 20090615
  Transmission Date: 20091009
  Serious: Yes (Life-Threatening)
  Sender: FDA-Public Use
  Company Number: None

PATIENT
  Age: 84 Year
  Sex: Male
  Weight: 74.5 kg

DRUGS (1)
  1. MELOXICAM [Suspect]
     Indication: NEUROPATHY PERIPHERAL
     Dosage: 7.5 MG DAILY ORAL
     Route: 048
     Dates: start: 20090423, end: 20090511

REACTIONS (4)
  - ANOREXIA [None]
  - ASTHENIA [None]
  - FATIGUE [None]
  - MELAENA [None]
